FAERS Safety Report 26123039 (Version 3)
Quarter: 2025Q4

REPORT INFORMATION
  Report Type: Report from Study
  Country: CA (occurrence: CA)
  Receive Date: 20251204
  Receipt Date: 20251216
  Transmission Date: 20260117
  Serious: Yes (Other)
  Sender: PFIZER
  Company Number: CA-PFIZER INC-202500224644

PATIENT
  Age: 22 Year
  Sex: Female

DRUGS (6)
  1. IXIFI [Suspect]
     Active Substance: INFLIXIMAB-QBTX
     Indication: Crohn^s disease
     Dosage: 600 MG, REINDUCTION WEEK 0,2,6, THEN EVERY 4 WEEKS
     Route: 042
     Dates: start: 20250528
  2. IXIFI [Suspect]
     Active Substance: INFLIXIMAB-QBTX
     Dosage: 600 MG, EVERY 4 WEEKS
     Route: 042
     Dates: start: 20250912
  3. CELEBREX [Concomitant]
     Active Substance: CELECOXIB
     Dosage: 1 DF
  4. ENBREL [Concomitant]
     Active Substance: ETANERCEPT
     Dosage: 1 DF
  5. FOLIC ACID [Concomitant]
     Active Substance: FOLIC ACID
     Dosage: 1 DF
  6. PREDNISONE [Concomitant]
     Active Substance: PREDNISONE
     Dosage: 1 DF

REACTIONS (5)
  - Wisdom teeth removal [Unknown]
  - Post procedural infection [Unknown]
  - Osteomyelitis [Recovered/Resolved]
  - Urinary tract infection [Recovering/Resolving]
  - Off label use [Unknown]

NARRATIVE: CASE EVENT DATE: 20250101
